FAERS Safety Report 9598518 (Version 1)
Quarter: 2013Q4

REPORT INFORMATION
  Report Type: Spontaneous
  Country: US (occurrence: US)
  Receive Date: 20131004
  Receipt Date: 20131004
  Transmission Date: 20140711
  Serious: No
  Sender: FDA-Public Use
  Company Number: US-AMGEN-USASP2013024226

PATIENT
  Age: 26 Year
  Sex: Male

DRUGS (3)
  1. ENBREL [Suspect]
     Indication: PSORIASIS
     Dosage: 50 MG, 2 TIMES/WK
     Dates: start: 20070108
  2. HUMIRA [Concomitant]
     Dosage: UNK
  3. STELAR [Concomitant]
     Dosage: UNK

REACTIONS (2)
  - Drug effect decreased [Recovered/Resolved]
  - Drug ineffective [Recovered/Resolved]
